FAERS Safety Report 14836477 (Version 5)
Quarter: 2019Q1

REPORT INFORMATION
  Report Type: Spontaneous
  Country: BR (occurrence: BR)
  Receive Date: 20180502
  Receipt Date: 20190128
  Transmission Date: 20190417
  Serious: Yes (Other)
  Sender: FDA-Public Use
  Company Number: BR-GLAXOSMITHKLINE-BR2018GSK073359

PATIENT
  Sex: Female
  Weight: 67 kg

DRUGS (1)
  1. BENLYSTA [Suspect]
     Active Substance: BELIMUMAB
     Indication: SYSTEMIC LUPUS ERYTHEMATOSUS
     Dosage: 760 MG, UNK
     Dates: start: 20180320

REACTIONS (9)
  - Vomiting [Recovered/Resolved]
  - Overdose [Unknown]
  - Inappropriate schedule of product administration [Recovered/Resolved]
  - Gastric disorder [Unknown]
  - Malaise [Recovered/Resolved]
  - Nephrolithiasis [Recovered/Resolved]
  - Weight decreased [Recovered/Resolved]
  - Underdose [Unknown]
  - Product dose omission [Not Recovered/Not Resolved]
